FAERS Safety Report 6209676-X (Version None)
Quarter: 2009Q2

REPORT INFORMATION
  Report Type: 
  Country: None (occurrence: None)
  Receive Date: 20090601
  Receipt Date: 20090521
  Transmission Date: 20091009
  Serious: Yes (Death, Other)
  Sender: FDA-Public Use
  Company Number: RO-AMGEN-QUU348645

PATIENT
  Sex: Female

DRUGS (5)
  1. NEULASTA [Suspect]
     Indication: CHEMOTHERAPY
     Route: 058
     Dates: start: 20090428
  2. CISPLATIN [Concomitant]
     Route: 042
     Dates: start: 20090427
  3. TOPOTECAN [Concomitant]
     Route: 042
     Dates: start: 20090427
  4. GRANISETRON HCL [Concomitant]
     Route: 042
     Dates: start: 20090427
  5. METOCLOPRAMIDE [Concomitant]
     Route: 042
     Dates: start: 20090427

REACTIONS (5)
  - DEHYDRATION [None]
  - FEBRILE NEUTROPENIA [None]
  - MUCOSAL INFLAMMATION [None]
  - PYREXIA [None]
  - VOMITING [None]
